FAERS Safety Report 25213041 (Version 1)
Quarter: 2025Q2

REPORT INFORMATION
  Report Type: Spontaneous
  Country: GB (occurrence: GB)
  Receive Date: 20250418
  Receipt Date: 20250418
  Transmission Date: 20250716
  Serious: Yes (Other)
  Sender: AUROBINDO
  Company Number: GB-MHRA-TPP28548536C206709YC1743701136674

PATIENT
  Age: 81 Year
  Sex: Male
  Weight: 65 kg

DRUGS (4)
  1. NAPROXEN [Suspect]
     Active Substance: NAPROXEN
     Indication: Product used for unknown indication
     Dosage: 500 MILLIGRAM, TWO TIMES A DAY, WITH FOOD
     Route: 065
     Dates: start: 20250319
  2. POTASSIUM BICARBONATE\SODIUM ALGINATE [Concomitant]
     Active Substance: POTASSIUM BICARBONATE\SODIUM ALGINATE
     Indication: Product used for unknown indication
     Dosage: UNK UNK, FOUR TIMES/DAY (TAKE ONE TO TWO 5ML SPOONFULS FOUR TIMES A DAY)
     Route: 065
     Dates: start: 20241107, end: 20250128
  3. Acidex advance [Concomitant]
     Indication: Product used for unknown indication
     Dosage: FOUR TIMES/DAY (TAKE 5ML TO 10MLS FOUR TIMES A DAY WHEN REQUIRED)
     Route: 065
     Dates: start: 20250128
  4. OMEPRAZOLE [Concomitant]
     Active Substance: OMEPRAZOLE
     Indication: Product used for unknown indication
     Dosage: 1 DOSAGE FORM, ONCE A DAY (TO PROTECT STOMACH ...)
     Route: 065
     Dates: start: 20250319

REACTIONS (2)
  - Dyspnoea [Unknown]
  - Bradycardia [Recovered/Resolved]
